FAERS Safety Report 25706551 (Version 1)
Quarter: 2025Q3

REPORT INFORMATION
  Report Type: Spontaneous
  Country: US (occurrence: US)
  Receive Date: 20250820
  Receipt Date: 20250820
  Transmission Date: 20251021
  Serious: Yes (Other)
  Sender: CATALYST PHARMA
  Company Number: US-SANTHERA-SAN-002154

PATIENT
  Age: 9 Year
  Sex: Male

DRUGS (8)
  1. AGAMREE [Suspect]
     Active Substance: VAMOROLONE
     Indication: Duchenne muscular dystrophy
     Dosage: 226.8 MILLIGRAM, QD
     Route: 048
     Dates: start: 20241017
  2. DELANDISTROGENE MOXEPARVOVEC [Suspect]
     Active Substance: DELANDISTROGENE MOXEPARVOVEC
     Indication: Duchenne muscular dystrophy
     Route: 042
     Dates: start: 20231002, end: 20231002
  3. DELANDISTROGENE MOXEPARVOVEC [Suspect]
     Active Substance: DELANDISTROGENE MOXEPARVOVEC
     Route: 042
     Dates: start: 20220811, end: 20220811
  4. DELANDISTROGENE MOXEPARVOVEC [Suspect]
     Active Substance: DELANDISTROGENE MOXEPARVOVEC
     Indication: Duchenne muscular dystrophy
     Route: 042
     Dates: start: 20220811, end: 20220811
  5. LISINOPRIL [Concomitant]
     Active Substance: LISINOPRIL
     Indication: Prophylaxis
     Route: 065
     Dates: start: 20241108
  6. VITAMIN D NOS [Concomitant]
     Active Substance: CHOLECALCIFEROL\ERGOCALCIFEROL
     Indication: Nutritional supplementation
     Route: 065
     Dates: start: 20241220
  7. EPLERENONE [Concomitant]
     Active Substance: EPLERENONE
     Indication: Prophylaxis
     Route: 065
     Dates: start: 20250115
  8. GIVINOSTAT [Concomitant]
     Active Substance: GIVINOSTAT
     Indication: Duchenne muscular dystrophy
     Route: 065
     Dates: start: 20250210

REACTIONS (3)
  - Pneumonia [Unknown]
  - Muscle strain [Unknown]
  - Troponin I increased [Recovered/Resolved]

NARRATIVE: CASE EVENT DATE: 20250208
